FAERS Safety Report 5259027-2 (Version None)
Quarter: 2007Q1

REPORT INFORMATION
  Report Type: 
  Country: None (occurrence: None)
  Receive Date: 20070305
  Receipt Date: 20070305
  Transmission Date: 20070707
  Serious: Yes (Death)
  Sender: FDA-Public Use
  Company Number: PRI050412007011

PATIENT
  Age: 60 Year
  Sex: Female
  Weight: 88.905 kg

DRUGS (8)
  1. OXALIPLATIN [Suspect]
     Indication: COLON CANCER METASTATIC
     Dosage: 157MG IV
     Route: 042
     Dates: start: 20070213, end: 20070213
  2. BEVACIZUMAB (GENENTECH) [Suspect]
     Indication: COLON CANCER METASTATIC
     Dosage: 445MG IV
     Route: 042
     Dates: start: 20070213, end: 20070213
  3. VALSARTAN [Concomitant]
  4. EZETIMIBE [Concomitant]
  5. NIACIN [Concomitant]
  6. ASPIRIN [Concomitant]
  7. MELOXICAM [Concomitant]
  8. FLONASE [Concomitant]

REACTIONS (1)
  - NO ADVERSE DRUG EFFECT [None]
